FAERS Safety Report 12507936 (Version 1)
Quarter: 2016Q2

REPORT INFORMATION
  Report Type: Spontaneous
  Country: US (occurrence: None)
  Receive Date: 20160628
  Receipt Date: 20160628
  Transmission Date: 20160815
  Serious: Yes (Life-Threatening, Hospitalization, Disabling)
  Sender: FDA-Public Use
  Company Number: None

PATIENT
  Age: 85 Year
  Sex: Female
  Weight: 58.97 kg

DRUGS (1)
  1. CORTICOSTEROID [Suspect]
     Active Substance: CORTICOSTEROID NOS
     Indication: NERVE COMPRESSION
     Dosage: SPINAL INJECTION
     Dates: start: 20160525, end: 20160525

REACTIONS (4)
  - Muscle spasms [None]
  - Arthralgia [None]
  - Cerebrovascular accident [None]
  - Pain in extremity [None]

NARRATIVE: CASE EVENT DATE: 20160619
